FAERS Safety Report 18200409 (Version 3)
Quarter: 2021Q3

REPORT INFORMATION
  Report Type: Other
  Country: US (occurrence: US)
  Receive Date: 20200827
  Receipt Date: 20210731
  Transmission Date: 20211014
  Serious: Yes (Hospitalization, Other)
  Sender: FDA-Public Use
  Company Number: US-ROCHE-2614367

PATIENT
  Age: 83 Year
  Sex: Male
  Weight: 94.43 kg

DRUGS (12)
  1. ESBRIET [Suspect]
     Active Substance: PIRFENIDONE
     Indication: BENIGN NEOPLASM OF PROSTATE
  2. NITROGLYCERINE [Concomitant]
     Active Substance: NITROGLYCERIN
  3. ESBRIET [Suspect]
     Active Substance: PIRFENIDONE
     Indication: IDIOPATHIC PULMONARY FIBROSIS
     Route: 048
  4. FAMOTIDINE. [Concomitant]
     Active Substance: FAMOTIDINE
  5. ESBRIET [Suspect]
     Active Substance: PIRFENIDONE
     Indication: BENIGN NEOPLASM OF PROSTATE
     Dosage: TAKE 1 CAPSULE BY MOUTH 3 TIMES A DAY WITH FOOD
     Route: 048
  6. AMLODIPINE [Concomitant]
     Active Substance: AMLODIPINE BESYLATE
  7. TAMSULOSIN [Concomitant]
     Active Substance: TAMSULOSIN
  8. ESBRIET [Suspect]
     Active Substance: PIRFENIDONE
     Indication: IDIOPATHIC PULMONARY FIBROSIS
  9. LATANOPROST. [Concomitant]
     Active Substance: LATANOPROST
  10. ATORVASTATIN [Concomitant]
     Active Substance: ATORVASTATIN
  11. FLUTICASONE. [Concomitant]
     Active Substance: FLUTICASONE
  12. METOPROLOL. [Concomitant]
     Active Substance: METOPROLOL

REACTIONS (5)
  - Blindness unilateral [Unknown]
  - Arrhythmia [Unknown]
  - Sepsis [Unknown]
  - Blood urine present [Unknown]
  - Prostatomegaly [Recovering/Resolving]

NARRATIVE: CASE EVENT DATE: 20210401
